FAERS Safety Report 6565831-0 (Version None)
Quarter: 2010Q1

REPORT INFORMATION
  Report Type: 
  Country: None (occurrence: None)
  Receive Date: 20100201
  Receipt Date: 20090825
  Transmission Date: 20100710
  Serious: No
  Sender: FDA-Public Use
  Company Number: US-ABBOTT-09P-163-0593937-00

PATIENT
  Age: 89 Year
  Sex: Male
  Weight: 59.02 kg

DRUGS (7)
  1. LUPRON DEPOT [Suspect]
     Indication: PROSTATE CANCER
     Route: 030
     Dates: start: 20070901, end: 20070901
  2. LUPRON DEPOT [Suspect]
     Indication: PROSTATE CANCER
     Route: 030
     Dates: start: 20090801, end: 20090801
  3. LUPRON DEPOT [Suspect]
     Route: 030
     Dates: start: 20071201
  4. LIPITOR [Concomitant]
     Indication: BLOOD CHOLESTEROL INCREASED
     Dosage: 1/2 TABLET DAILY TO EQUAL 20MG
     Route: 048
  5. ATENOLOL [Concomitant]
     Indication: HYPERTENSION
     Dosage: 1/2 OF 50 MG TABLET DAILY
     Route: 048
  6. CASODEX [Concomitant]
     Indication: PROSTATE CANCER
     Route: 048
     Dates: start: 20070901, end: 20071001
  7. CASODEX [Concomitant]
     Route: 048
     Dates: start: 20090801

REACTIONS (3)
  - DRUG DISPENSING ERROR [None]
  - INJECTION SITE PAIN [None]
  - PROSTATIC SPECIFIC ANTIGEN INCREASED [None]
